FAERS Safety Report 10991562 (Version 3)
Quarter: 2015Q4

REPORT INFORMATION
  Report Type: Spontaneous
  Country: US (occurrence: US)
  Receive Date: 20150406
  Receipt Date: 20151028
  Transmission Date: 20160304
  Serious: No
  Sender: FDA-Public Use
  Company Number: US-009507513-1504USA001188

PATIENT
  Sex: Male

DRUGS (1)
  1. PROPECIA [Suspect]
     Active Substance: FINASTERIDE
     Indication: ANDROGENETIC ALOPECIA
     Dosage: 1 MG, UNK
     Route: 048
     Dates: start: 20061212, end: 20100823

REACTIONS (6)
  - Depression [Unknown]
  - Sexual dysfunction [Not Recovered/Not Resolved]
  - Anxiety [Unknown]
  - Hyperlipidaemia [Unknown]
  - Androgenetic alopecia [Unknown]
  - Erectile dysfunction [Not Recovered/Not Resolved]

NARRATIVE: CASE EVENT DATE: 2006
